FAERS Safety Report 20797776 (Version 1)
Quarter: 2022Q2

REPORT INFORMATION
  Report Type: Report from Study
  Country: NL (occurrence: NL)
  Receive Date: 20220506
  Receipt Date: 20220506
  Transmission Date: 20220720
  Serious: Yes (Death, Other)
  Sender: FDA-Public Use
  Company Number: NL-ABBVIE-22K-114-4383241-00

PATIENT
  Age: 75 Year
  Sex: Male

DRUGS (3)
  1. CARBIDOPA\LEVODOPA [Suspect]
     Active Substance: CARBIDOPA\LEVODOPA
     Indication: Parkinson^s disease
     Route: 050
     Dates: start: 20200703
  2. CARBIDOPA\LEVODOPA [Suspect]
     Active Substance: CARBIDOPA\LEVODOPA
     Dosage: MD: 8.2ML, CD: 5.2ML/H, ED: 2.0ML, CND: 4.4ML/H
     Route: 050
  3. CARBIDOPA\LEVODOPA [Suspect]
     Active Substance: CARBIDOPA\LEVODOPA
     Dosage: MD: 8.2ML, CD: 5.2ML/H, ED: 2.0ML, CND: 4.4ML/H, END: 2.0ML
     Route: 050

REACTIONS (5)
  - Death [Fatal]
  - Pulmonary embolism [Not Recovered/Not Resolved]
  - Dementia [Not Recovered/Not Resolved]
  - Hypertension [Not Recovered/Not Resolved]
  - Parkinson^s disease [Not Recovered/Not Resolved]
